FAERS Safety Report 6923209-1 (Version None)
Quarter: 2010Q3

REPORT INFORMATION
  Report Type: 
  Country: None (occurrence: None)
  Receive Date: 20100813
  Receipt Date: 20100805
  Transmission Date: 20110219
  Serious: Yes (Hospitalization)
  Sender: FDA-Public Use
  Company Number: JP-ROCHE-716231

PATIENT
  Sex: Male
  Weight: 70 kg

DRUGS (2)
  1. AVASTIN [Suspect]
     Indication: LUNG ADENOCARCINOMA
     Route: 041
     Dates: start: 20091216, end: 20100624
  2. ALESION [Concomitant]
     Route: 048
     Dates: start: 20091115

REACTIONS (2)
  - BRONCHITIS [None]
  - INTERSTITIAL LUNG DISEASE [None]
